FAERS Safety Report 25276637 (Version 2)
Quarter: 2025Q2

REPORT INFORMATION
  Report Type: Spontaneous
  Country: PE (occurrence: PE)
  Receive Date: 20250507
  Receipt Date: 20250521
  Transmission Date: 20250716
  Serious: Yes (Other)
  Sender: ROCHE
  Company Number: PE-ROCHE-10000269530

PATIENT
  Sex: Female
  Weight: 72 kg

DRUGS (3)
  1. HERCEPTIN [Suspect]
     Active Substance: TRASTUZUMAB
     Indication: Breast cancer
     Route: 042
     Dates: start: 2024
  2. HERCEPTIN [Suspect]
     Active Substance: TRASTUZUMAB
     Route: 042
     Dates: start: 2016, end: 2017
  3. PERTUZUMAB [Suspect]
     Active Substance: PERTUZUMAB
     Indication: Breast cancer
     Dosage: HER LAST APPLICATION OF DRUGS WAS 29/APR/2025
     Route: 065

REACTIONS (8)
  - Bone pain [Unknown]
  - Headache [Unknown]
  - Breast cancer recurrent [Unknown]
  - Arthralgia [Unknown]
  - Metastases to bone [Unknown]
  - Muscle spasms [Unknown]
  - Sensory disturbance [Unknown]
  - Product prescribing error [Unknown]

NARRATIVE: CASE EVENT DATE: 20230101
